FAERS Safety Report 15525099 (Version 1)
Quarter: 2018Q4

REPORT INFORMATION
  Report Type: Spontaneous
  Country: DE (occurrence: DE)
  Receive Date: 20181018
  Receipt Date: 20181018
  Transmission Date: 20190205
  Serious: Yes (Death, Life-Threatening, Hospitalization, Other)
  Sender: FDA-Public Use
  Company Number: DE-PAN-2018-000562

PATIENT
  Age: 55 Year
  Sex: Male
  Weight: 88 kg

DRUGS (4)
  1. PANTOPRAZOLE [Concomitant]
     Active Substance: PANTOPRAZOLE
     Dosage: MORNING AND EVENING
  2. TACROLIMUS. [Suspect]
     Active Substance: TACROLIMUS
     Indication: IMMUNOSUPPRESSANT DRUG THERAPY
     Dosage: ONE IN THE MORNING, 2 IN THE EVENING
  3. ACETYLSALICYLIC ACID [Concomitant]
     Active Substance: ASPIRIN
     Dosage: AT NOON
  4. ENALAPRIL [Concomitant]
     Active Substance: ENALAPRIL
     Dosage: IN THE MORNING

REACTIONS (6)
  - Multiple organ dysfunction syndrome [Fatal]
  - Duodenal ulcer haemorrhage [Fatal]
  - Duodenal ulcer perforation [Fatal]
  - Epstein-Barr virus infection [Fatal]
  - Post transplant lymphoproliferative disorder [Fatal]
  - Anaemia [Not Recovered/Not Resolved]
